FAERS Safety Report 11473261 (Version 1)
Quarter: 2015Q3

REPORT INFORMATION
  Report Type: Spontaneous
  Country: US (occurrence: US)
  Receive Date: 20150908
  Receipt Date: 20150908
  Transmission Date: 20151125
  Serious: Yes (Other)
  Sender: FDA-Public Use
  Company Number: US-JAZZ-2014-US-006667

PATIENT
  Age: 64 Year
  Sex: Female

DRUGS (4)
  1. XYREM [Suspect]
     Active Substance: SODIUM OXYBATE
     Indication: FIBROMYALGIA
     Dosage: 2.25 G, BID
     Route: 048
     Dates: start: 200505, end: 200606
  2. XYREM [Suspect]
     Active Substance: SODIUM OXYBATE
     Dosage: DOSE ADJUSTMENTS
     Route: 048
  3. XYREM [Suspect]
     Active Substance: SODIUM OXYBATE
     Dosage: 3 G, BID
     Route: 048
     Dates: start: 201207
  4. ANALGESIC [Suspect]
     Active Substance: UNSPECIFIED INGREDIENT
     Indication: PAIN

REACTIONS (14)
  - Feeling abnormal [Not Recovered/Not Resolved]
  - Morbid thoughts [Unknown]
  - Fall [Recovered/Resolved]
  - Deformity [Not Recovered/Not Resolved]
  - Depression [Not Recovered/Not Resolved]
  - Spinal disorder [Not Recovered/Not Resolved]
  - Tendon rupture [Not Recovered/Not Resolved]
  - Activities of daily living impaired [Not Recovered/Not Resolved]
  - Therapeutic response decreased [Unknown]
  - Ligament rupture [Not Recovered/Not Resolved]
  - Off label use [Unknown]
  - Synovial cyst [Not Recovered/Not Resolved]
  - Unevaluable event [Unknown]
  - Foot deformity [Recovered/Resolved]

NARRATIVE: CASE EVENT DATE: 2014
